FAERS Safety Report 6636719-1 (Version None)
Quarter: 2010Q1

REPORT INFORMATION
  Report Type: 
  Country: None (occurrence: None)
  Receive Date: 20100316
  Receipt Date: 20100308
  Transmission Date: 20100710
  Serious: Yes (Other)
  Sender: FDA-Public Use
  Company Number: B0638176A

PATIENT
  Sex: Female

DRUGS (4)
  1. LAMICTAL CD [Suspect]
     Indication: DRUG USE FOR UNKNOWN INDICATION
     Route: 048
     Dates: start: 20090613
  2. EFFEXOR [Concomitant]
     Dosage: 75MG PER DAY
     Route: 048
     Dates: start: 20070101
  3. ATHYMIL [Concomitant]
     Route: 048
     Dates: start: 20090610, end: 20090924
  4. OROCAL D3 [Concomitant]

REACTIONS (3)
  - ABNORMAL DREAMS [None]
  - NIGHTMARE [None]
  - PANIC ATTACK [None]
